FAERS Safety Report 14491853 (Version 5)
Quarter: 2020Q1

REPORT INFORMATION
  Report Type: Report from Study
  Country: DE (occurrence: DE)
  Receive Date: 20180206
  Receipt Date: 20200318
  Transmission Date: 20200409
  Serious: Yes (Other)
  Sender: FDA-Public Use
  Company Number: DE-BIOGEN-2018BI00519336

PATIENT
  Age: 51 Year
  Sex: Female
  Weight: 65 kg

DRUGS (12)
  1. TYSABRI [Suspect]
     Active Substance: NATALIZUMAB
     Route: 042
     Dates: start: 20170910
  2. IBUPROFEN. [Concomitant]
     Active Substance: IBUPROFEN
     Indication: FOOT FRACTURE
     Route: 050
     Dates: start: 20170714
  3. CITALOPRAM [Concomitant]
     Active Substance: CITALOPRAM HYDROBROMIDE
     Indication: PRODUCT USED FOR UNKNOWN INDICATION
     Route: 050
     Dates: start: 1997
  4. HEPARIN [Concomitant]
     Active Substance: HEPARIN SODIUM
     Indication: THROMBOSIS PROPHYLAXIS
     Route: 050
     Dates: start: 20170714
  5. KLIMAKTOPLANT N [Concomitant]
     Indication: MENOPAUSAL DISORDER
     Route: 050
     Dates: start: 20160919
  6. SIMVA-ARISTO [Concomitant]
     Active Substance: SIMVASTATIN
     Indication: TRANSIENT ISCHAEMIC ATTACK
     Route: 050
     Dates: start: 20170130
  7. TYSABRI [Suspect]
     Active Substance: NATALIZUMAB
     Indication: RELAPSING-REMITTING MULTIPLE SCLEROSIS
     Route: 050
     Dates: start: 20070910
  8. SIFROL [Concomitant]
     Active Substance: PRAMIPEXOLE
     Indication: RESTLESS LEGS SYNDROME
     Route: 050
     Dates: start: 20141124
  9. MIRTAZEPINE [Concomitant]
     Active Substance: MIRTAZAPINE
     Indication: PRODUCT USED FOR UNKNOWN INDICATION
     Route: 050
     Dates: start: 201306
  10. DEKRISTOL [Concomitant]
     Active Substance: CHOLECALCIFEROL
     Indication: VITAMIN D DEFICIENCY
     Route: 050
     Dates: start: 20150711
  11. FERROSANOL [Concomitant]
     Active Substance: FERROUS GLUCONATE
     Indication: PRODUCT USED FOR UNKNOWN INDICATION
     Route: 050
     Dates: start: 20150711
  12. ASA [Concomitant]
     Active Substance: ASPIRIN
     Indication: TRANSIENT ISCHAEMIC ATTACK
     Route: 050
     Dates: start: 20170130

REACTIONS (2)
  - Angioedema [Recovered/Resolved]
  - Facial pain [Recovered/Resolved]

NARRATIVE: CASE EVENT DATE: 20170809
